FAERS Safety Report 16135030 (Version 1)
Quarter: 2019Q1

REPORT INFORMATION
  Report Type: Report from Study
  Country: US (occurrence: US)
  Receive Date: 20190329
  Receipt Date: 20190329
  Transmission Date: 20190418
  Serious: Yes (Other)
  Sender: FDA-Public Use
  Company Number: US-BAYER-2019-045502

PATIENT
  Age: 54 Year
  Sex: Male

DRUGS (9)
  1. LORAZEPAM. [Concomitant]
     Active Substance: LORAZEPAM
     Dosage: UNK
  2. OXYCODONE [Concomitant]
     Active Substance: OXYCODONE
     Dosage: UNK
  3. PROCHLORPERAZINE. [Concomitant]
     Active Substance: PROCHLORPERAZINE
  4. STIVARGA [Suspect]
     Active Substance: REGORAFENIB
     Indication: COLON CANCER
     Dosage: 160 MG, QD FOR 21 DAYS, OFF 7 DAYS
     Route: 048
     Dates: start: 20190225
  5. METOPROLOL. [Concomitant]
     Active Substance: METOPROLOL
     Dosage: UNK
  6. STIVARGA [Suspect]
     Active Substance: REGORAFENIB
     Indication: COLORECTAL CANCER
  7. LIDO/PRILOCAINE [Concomitant]
     Dosage: UNK
  8. ZOLPIDEM [Concomitant]
     Active Substance: ZOLPIDEM\ZOLPIDEM TARTRATE
     Dosage: UNK
  9. MECLIZINE [Concomitant]
     Active Substance: MECLIZINE HYDROCHLORIDE
     Dosage: UNK

REACTIONS (10)
  - Dizziness [Unknown]
  - Hypertension [None]
  - Paraesthesia [Unknown]
  - Neoplasm malignant [None]
  - Dysphonia [Unknown]
  - Muscle fatigue [Not Recovered/Not Resolved]
  - Pain [Unknown]
  - Stomatitis [None]
  - Neuropathy peripheral [Unknown]
  - Skin disorder [Unknown]

NARRATIVE: CASE EVENT DATE: 2019
